FAERS Safety Report 7980772-X (Version None)
Quarter: 2011Q4

REPORT INFORMATION
  Report Type: 
  Country: None (occurrence: None)
  Receive Date: 20111214
  Receipt Date: 20111111
  Transmission Date: 20120403
  Serious: No
  Sender: FDA-Public Use
  Company Number: US-BAYER-2011-110471

PATIENT
  Age: 68 Year

DRUGS (2)
  1. ALEVE (CAPLET) [Suspect]
     Indication: MYALGIA
     Dosage: 1 DF, QD
     Route: 048
  2. ASPIRIN [Suspect]
     Indication: MYALGIA
     Route: 048

REACTIONS (2)
  - MYALGIA [None]
  - NO ADVERSE EVENT [None]
